FAERS Safety Report 9520870 (Version 1)
Quarter: 2013Q3

REPORT INFORMATION
  Report Type: Spontaneous
  Country: US (occurrence: None)
  Receive Date: 20130903
  Receipt Date: 20130903
  Transmission Date: 20140515
  Serious: Yes (Death, Hospitalization)
  Sender: FDA-Public Use
  Company Number: P0613

PATIENT
  Age: 72 Year
  Sex: Male

DRUGS (16)
  1. SIPULEUCEL -T [Suspect]
     Indication: PROSTATE CANCER METASTATIC
     Dosage: INTRAVENOUS (NOT OTHERWISE SPECIFIED)
     Dates: start: 20120427, end: 20120427
  2. BUSPIRONE (BUSPIRONE) [Concomitant]
  3. ABIRATERONE (ABIRATERONE) [Concomitant]
  4. ALENDRONATE (ALENDRONATE SODIUM) [Concomitant]
  5. AMLODIPINE (AMLODIPINE) [Concomitant]
  6. ASPIRIN EC (ACETYLSALICYLIC ACID) [Concomitant]
  7. ATORVASTATIN (ATORVASTATIN) [Concomitant]
  8. CALCIUM CARBONATE (CALCIUM CARBONATE) [Concomitant]
  9. CARVEDILOL (CARVEDILOL) [Concomitant]
  10. VITAMIN D3 (COLECALCIFEROL) [Concomitant]
  11. LOVENOX (ENOXAPARIN SODIUM) [Concomitant]
  12. LORAZEPAM (LORAZEPAM) [Concomitant]
  13. LOSARTAN (LOSARTAN) [Concomitant]
  14. OMEGA-3 [Concomitant]
  15. POTASSIUM CHLORIDE (POTASSIUM CHLORIDE) [Concomitant]
  16. PREDNISONE (PREDNISONE) [Concomitant]

REACTIONS (4)
  - Cerebrovascular accident [None]
  - Cerebral infarction [None]
  - Dyskinesia [None]
  - Carotid artery stenosis [None]
